FAERS Safety Report 7192286-8 (Version None)
Quarter: 2010Q4

REPORT INFORMATION
  Report Type: 
  Country: None (occurrence: None)
  Receive Date: 20101223
  Receipt Date: 20101220
  Transmission Date: 20110411
  Serious: Yes (Disabling, Other)
  Sender: FDA-Public Use
  Company Number: TR-GILEAD-2010-0032836

PATIENT
  Sex: Male
  Weight: 68 kg

DRUGS (4)
  1. VIREAD [Suspect]
     Indication: PRODUCT USED FOR UNKNOWN INDICATION
     Route: 048
     Dates: start: 20090406
  2. LAMIVUDINE [Concomitant]
  3. LAMIVUDINE [Concomitant]
  4. HEPSERA [Concomitant]
     Indication: HEPATITIS B

REACTIONS (3)
  - DRUG INEFFECTIVE [None]
  - OSTEOPENIA [None]
  - VIRAL LOAD INCREASED [None]
